FAERS Safety Report 20230038 (Version 1)
Quarter: 2021Q4

REPORT INFORMATION
  Report Type: Spontaneous
  Country: FR (occurrence: FR)
  Receive Date: 20211226
  Receipt Date: 20211226
  Transmission Date: 20220303
  Serious: Yes (Other)
  Sender: FDA-Public Use
  Company Number: None

PATIENT
  Age: 57 Year
  Sex: Female

DRUGS (1)
  1. LOVENOX [Suspect]
     Active Substance: ENOXAPARIN SODIUM
     Indication: Carotid artery occlusion
     Dosage: AS REPORTED:LOVENOX 10000 UI ANTI-XA/1 ML, SOLUTION INJECTABLE (S.C.) IN AMPULE 10000 IU X 2 PER DAY
     Route: 058
     Dates: start: 20210923, end: 20210929

REACTIONS (1)
  - Hepatic cytolysis [Not Recovered/Not Resolved]

NARRATIVE: CASE EVENT DATE: 20210926
